FAERS Safety Report 4644669-5 (Version None)
Quarter: 2005Q2

REPORT INFORMATION
  Report Type: 
  Country: None (occurrence: None)
  Receive Date: 20050422
  Receipt Date: 20050411
  Transmission Date: 20051028
  Serious: Yes (Other)
  Sender: FDA-Public Use
  Company Number: S05-USA-01928-01

PATIENT

DRUGS (2)
  1. NAMENDA [Suspect]
  2. NAMENDA [Suspect]

REACTIONS (1)
  - BUNDLE BRANCH BLOCK LEFT [None]
